FAERS Safety Report 5409691-X (Version None)
Quarter: 2007Q3

REPORT INFORMATION
  Report Type: 
  Country: None (occurrence: None)
  Receive Date: 20070808
  Receipt Date: 20070808
  Transmission Date: 20080115
  Serious: Yes (Hospitalization)
  Sender: FDA-Public Use
  Company Number: None

PATIENT
  Sex: Female
  Weight: 60.81 kg

DRUGS (8)
  1. TOPOTECAN [Suspect]
  2. LOVENOX [Suspect]
  3. CIPRO [Concomitant]
  4. FENTANYL [Concomitant]
  5. FLAGYL [Concomitant]
  6. NICODERM [Concomitant]
  7. PERCOCET [Concomitant]
  8. PHENERGAN HCL [Concomitant]

REACTIONS (6)
  - BACTERIA URINE IDENTIFIED [None]
  - DIARRHOEA [None]
  - DRUG INEFFECTIVE [None]
  - FLANK PAIN [None]
  - FREQUENT BOWEL MOVEMENTS [None]
  - TRICHOSPORON INFECTION [None]
